FAERS Safety Report 12139738 (Version 1)
Quarter: 2016Q1

REPORT INFORMATION
  Report Type: Spontaneous
  Country: GR (occurrence: GR)
  Receive Date: 20160303
  Receipt Date: 20160303
  Transmission Date: 20160526
  Serious: Yes (Other)
  Sender: FDA-Public Use
  Company Number: GR-AMGEN-GRCSP2016025078

PATIENT
  Age: 45 Year

DRUGS (4)
  1. ENBREL [Suspect]
     Active Substance: ETANERCEPT
     Indication: PSORIASIS
  2. CYCLOSPORINE. [Concomitant]
     Active Substance: CYCLOSPORINE
     Indication: PSORIASIS
     Dosage: UNK
     Dates: start: 2011
  3. ENBREL [Suspect]
     Active Substance: ETANERCEPT
     Indication: PSORIATIC ARTHROPATHY
     Dosage: UNK
     Route: 065
     Dates: start: 2003
  4. CYCLOSPORINE. [Concomitant]
     Active Substance: CYCLOSPORINE
     Indication: PSORIATIC ARTHROPATHY

REACTIONS (2)
  - Cholecystitis [Unknown]
  - Cholelithiasis [Unknown]
